FAERS Safety Report 6554418-1 (Version None)
Quarter: 2010Q1

REPORT INFORMATION
  Report Type: 
  Country: None (occurrence: None)
  Receive Date: 20100127
  Receipt Date: 20100112
  Transmission Date: 20100710
  Serious: Yes (Disabling, Other)
  Sender: FDA-Public Use
  Company Number: US-B.I. PHARMACEUTICALS,INC./RIDGEFIELD-2010-DE-00145GD

PATIENT
  Sex: Female

DRUGS (10)
  1. PRAMIPEXOLE DIHYDROCHLORIDE [Suspect]
     Indication: PARKINSON'S DISEASE
     Dosage: 5 MG
  2. PRAMIPEXOLE DIHYDROCHLORIDE [Suspect]
     Dosage: 4 MG
  3. PRAMIPEXOLE DIHYDROCHLORIDE [Suspect]
     Dosage: 0.5 MG
  4. LEVODOPA [Suspect]
     Indication: PARKINSON'S DISEASE
     Dosage: 600 MG
  5. LEVODOPA [Suspect]
     Dosage: DOSING FREQUENCY WAS INCREASED
  6. LEVODOPA [Suspect]
     Dosage: SELF-MEDICATED WITH SUPRATHERAPEUTIC LEVODOPA
  7. LEVODOPA [Suspect]
     Dosage: 950 MG
  8. ENTACAPONE [Concomitant]
     Indication: PARKINSON'S DISEASE
     Dosage: 1200 MG
  9. MIRTAZAPINE [Concomitant]
     Indication: PARKINSON'S DISEASE
     Dosage: 30 MG
  10. SELEGILINE HYDROCHLORIDE [Concomitant]
     Indication: PARKINSON'S DISEASE

REACTIONS (19)
  - AGORAPHOBIA [None]
  - ANXIETY [None]
  - CHOREA [None]
  - COMPULSIVE SHOPPING [None]
  - DRUG WITHDRAWAL SYNDROME [None]
  - DYSKINESIA [None]
  - DYSPHORIA [None]
  - DYSTONIA [None]
  - EARLY RETIREMENT [None]
  - EATING DISORDER [None]
  - FEELING ABNORMAL [None]
  - HALLUCINATION, VISUAL [None]
  - HYPERSEXUALITY [None]
  - IMPULSE-CONTROL DISORDER [None]
  - MALAISE [None]
  - MARITAL PROBLEM [None]
  - PAIN [None]
  - PANIC ATTACK [None]
  - STEREOTYPY [None]
